FAERS Safety Report 9443736 (Version 2)
Quarter: 2013Q3

REPORT INFORMATION
  Report Type: Spontaneous
  Country: US (occurrence: US)
  Receive Date: 20130806
  Receipt Date: 20130821
  Transmission Date: 20140515
  Serious: No
  Sender: FDA-Public Use
  Company Number: US-009507513-1307USA014978

PATIENT
  Sex: Female
  Weight: 54.42 kg

DRUGS (4)
  1. PEGINTRON [Suspect]
     Indication: HEPATITIS C
     Dosage: REDIPEN 50 MICROGRAM PER 0.5ML INJECTED SUBCUTANEOUSLY ONCE A WEEK
     Route: 058
     Dates: start: 20130621, end: 2013
  2. REBETOL [Suspect]
     Indication: HEPATITIS C
     Dosage: 2 IN THE MORNING AND 2 AT NIGHT
     Route: 048
     Dates: start: 20130621, end: 2013
  3. REBETOL [Suspect]
     Dosage: 2 AT NIGHT
     Route: 048
     Dates: start: 2013
  4. VICTRELIS [Suspect]
     Indication: HEPATITIS C
     Dosage: FOUR OF THE 200MG VICTRELIS CAPSULES ORALLY THREE TIMES A DAY, EVERY 7 TO 9 HOURS WITH A LIGHT SNACK
     Route: 048
     Dates: start: 20130719, end: 2013

REACTIONS (10)
  - Blood count abnormal [Unknown]
  - Nausea [Unknown]
  - Vomiting [Unknown]
  - Pain [Unknown]
  - Pyrexia [Unknown]
  - Chills [Unknown]
  - Anaemia [Unknown]
  - Full blood count decreased [Unknown]
  - Asthenia [Unknown]
  - Weight decreased [Unknown]
